FAERS Safety Report 10457247 (Version 1)
Quarter: 2014Q3

REPORT INFORMATION
  Report Type: Spontaneous
  Country: US (occurrence: US)
  Receive Date: 20140916
  Receipt Date: 20140916
  Transmission Date: 20150326
  Serious: Yes (Hospitalization, Other)
  Sender: FDA-Public Use
  Company Number: US-B.I. PHARMACEUTICALS,INC./RIDGEFIELD-2014-BI-42942BP

PATIENT
  Age: 79 Year
  Sex: Male
  Weight: 81.87 kg

DRUGS (1)
  1. PRADAXA [Suspect]
     Active Substance: DABIGATRAN ETEXILATE MESYLATE
     Indication: ATRIAL FIBRILLATION
     Dosage: 300 MG
     Route: 048
     Dates: start: 20110706

REACTIONS (9)
  - Hypokalaemia [Not Recovered/Not Resolved]
  - Transaminases increased [Unknown]
  - Haemorrhagic anaemia [Recovered/Resolved]
  - Cardiac failure congestive [Unknown]
  - Faeces discoloured [Unknown]
  - Gastritis [Unknown]
  - Gastrointestinal haemorrhage [Unknown]
  - Acute myocardial infarction [Unknown]
  - Renal failure chronic [Unknown]

NARRATIVE: CASE EVENT DATE: 201107
